FAERS Safety Report 6466641-5 (Version None)
Quarter: 2009Q4

REPORT INFORMATION
  Report Type: 
  Country: None (occurrence: None)
  Receive Date: 20091202
  Receipt Date: 20091119
  Transmission Date: 20100525
  Serious: Yes (Other)
  Sender: FDA-Public Use
  Company Number: US-PFIZER INC-2009301260

PATIENT
  Sex: Female
  Weight: 76.644 kg

DRUGS (7)
  1. DILANTIN [Suspect]
     Indication: EPILEPSY
     Dosage: 100 MG, UNK
     Dates: start: 20070601
  2. DILANTIN [Suspect]
     Dosage: 50 MG, UNK
     Route: 048
     Dates: start: 20050501
  3. CLONAZEPAM [Concomitant]
     Dosage: ONE HALF TO ONE TABLET AS NEEDED
     Route: 048
  4. VITAMIN E [Concomitant]
     Dosage: UNK
  5. VITAMIN B COMPLEX CAP [Concomitant]
     Dosage: UNK
  6. VITAMIN D [Concomitant]
     Dosage: UNK
  7. ACETAMINOPHEN AND HYDROCODONE BITARTRATE [Concomitant]
     Dosage: ONE TO TWO TABLETS EVERY FOUR TO SIX HOURS AS NEEDED
     Route: 048

REACTIONS (3)
  - ABDOMINAL DISCOMFORT [None]
  - BREAST CANCER [None]
  - MALAISE [None]
